FAERS Safety Report 7494947 (Version 8)
Quarter: 2012Q4

REPORT INFORMATION
  Report Type: Report from Study
  Country: KR (occurrence: KR)
  Receive Date: 20100722
  Receipt Date: 20121205
  Transmission Date: 20130627
  Serious: Yes (Death, Hospitalization)
  Sender: FDA-Public Use
  Company Number: KR-ABBOTT-10P-090-0655788-00

PATIENT
  Age: 65 Year
  Sex: Male

DRUGS (12)
  1. KALETRA TABLETS [Suspect]
     Indication: PRODUCT USED FOR UNKNOWN INDICATION
     Dates: start: 20091112, end: 20100601
  2. ABC [Concomitant]
     Indication: PRODUCT USED FOR UNKNOWN INDICATION
     Dosage: 600 mg, Daily
     Route: 048
     Dates: start: 20100519, end: 20100601
  3. AZT(ZDV) [Concomitant]
     Indication: ANTIRETROVIRAL THERAPY
     Dosage: 600 mg, Daily
     Route: 048
     Dates: start: 20091112, end: 20100518
  4. 3TC [Concomitant]
     Indication: PRODUCT USED FOR UNKNOWN INDICATION
     Dosage: 30 mg, Daily
     Route: 048
     Dates: start: 20091112, end: 20100601
  5. COMBIVIR [Concomitant]
     Indication: HIV INFECTION
     Dosage: 2 tablets, Daily
     Route: 048
     Dates: start: 20091112, end: 20100518
  6. DAPSONE [Concomitant]
     Indication: ANTIFUNGAL PROPHYLAXIS
     Dosage: 100mg x 1 tablet daily
     Route: 048
     Dates: start: 20100401, end: 20100517
  7. TS TAB [Concomitant]
     Indication: ANTIFUNGAL PROPHYLAXIS
     Dosage: 1 tab, Daily
     Route: 048
     Dates: start: 20091112, end: 20100401
  8. ZIAGEN [Concomitant]
     Indication: HIV INFECTION
     Dosage: 2 tablets, Daily
     Route: 048
     Dates: start: 20100518, end: 20100601
  9. MEGACE SUSPENSION 40MG/240ML [Concomitant]
     Indication: DECREASED APPETITE
     Dosage: 10 ml, Daily
     Route: 048
     Dates: start: 20100401, end: 20100514
  10. CJ 20% DEXTROSE WATER 0.2G/ML 1000ML [Concomitant]
     Indication: MEDICAL DIET
     Dosage: 1 liter, Daily
     Route: 042
     Dates: start: 20100517, end: 20100524
  11. CEBATRIM INJ [Concomitant]
     Indication: ANTIFUNGAL PROPHYLAXIS
     Dosage: 4 Vial daily
     Route: 042
     Dates: start: 20100601, end: 20100602
  12. NORPINE [Concomitant]
     Indication: BLOOD PRESSURE INCREASED
     Dosage: 40 mg/240ml, Daily
     Route: 042
     Dates: start: 20100602, end: 20100608

REACTIONS (14)
  - Pneumonia [Fatal]
  - Sepsis [Fatal]
  - Bone marrow failure [Fatal]
  - Renal failure [Fatal]
  - Hepatic failure [Fatal]
  - Haemoglobin decreased [Unknown]
  - White blood cell count decreased [Unknown]
  - Leukopenia [Recovered/Resolved]
  - Diarrhoea [Recovered/Resolved]
  - Diarrhoea infectious [Recovered/Resolved]
  - Anaemia [Unknown]
  - Decreased appetite [Recovered/Resolved]
  - Dizziness [Recovered/Resolved]
  - Hypotension [Fatal]
